FAERS Safety Report 18547943 (Version 1)
Quarter: 2020Q4

REPORT INFORMATION
  Report Type: Report from Study
  Country: US (occurrence: US)
  Receive Date: 20201125
  Receipt Date: 20201125
  Transmission Date: 20210114
  Serious: Yes (Hospitalization)
  Sender: FDA-Public Use
  Company Number: US-JNJFOC-20201039914

PATIENT
  Age: 74 Year
  Sex: Male

DRUGS (1)
  1. MACITENTAN [Suspect]
     Active Substance: MACITENTAN
     Indication: PRODUCT USED FOR UNKNOWN INDICATION
     Route: 065
     Dates: start: 20190308

REACTIONS (3)
  - Staphylococcal infection [Unknown]
  - Medication error [Unknown]
  - Surgery [Unknown]

NARRATIVE: CASE EVENT DATE: 20201020
